FAERS Safety Report 9828231 (Version 2)
Quarter: 2014Q2

REPORT INFORMATION
  Report Type: Spontaneous
  Country: BR (occurrence: BR)
  Receive Date: 20140117
  Receipt Date: 20140418
  Transmission Date: 20141212
  Serious: Yes (Death, Hospitalization, Other)
  Sender: FDA-Public Use
  Company Number: BR-ABBVIE-14P-020-1190174-00

PATIENT
  Age: 68 Year
  Sex: Female
  Weight: 100 kg

DRUGS (4)
  1. HUMIRA [Suspect]
     Indication: RHEUMATOID ARTHRITIS
     Route: 058
     Dates: start: 2004
  2. METHOTREXATE [Suspect]
     Indication: RHEUMATOID ARTHRITIS
  3. UNKNOWN MEDICATION [Concomitant]
     Indication: DIABETES MELLITUS
  4. UNKNOWN MEDICATION [Concomitant]
     Indication: PRODUCT USED FOR UNKNOWN INDICATION

REACTIONS (6)
  - Multi-organ failure [Fatal]
  - Septic shock [Fatal]
  - Diabetes mellitus [Fatal]
  - Feeling abnormal [Not Recovered/Not Resolved]
  - Coma [Not Recovered/Not Resolved]
  - Hypersensitivity [Unknown]
